FAERS Safety Report 17812691 (Version 1)
Quarter: 2020Q2

REPORT INFORMATION
  Report Type: Report from Study
  Country: US (occurrence: US)
  Receive Date: 20200521
  Receipt Date: 20200521
  Transmission Date: 20200714
  Serious: Yes (Other)
  Sender: FDA-Public Use
  Company Number: US-VERTEX PHARMACEUTICALS-2020-010791

PATIENT
  Sex: Female

DRUGS (1)
  1. TRIKAFTA [Suspect]
     Active Substance: ELEXACAFTOR\IVACAFTOR\TEZACAFTOR
     Indication: CYSTIC FIBROSIS
     Dosage: ONLY MORNING DOSES
     Route: 048
     Dates: start: 201912

REACTIONS (6)
  - Dizziness [Unknown]
  - Thirst [Unknown]
  - Urine output decreased [Unknown]
  - Hallucination [Unknown]
  - Syncope [Unknown]
  - Sensation of foreign body [Unknown]
